FAERS Safety Report 6491922-9 (Version None)
Quarter: 2009Q4

REPORT INFORMATION
  Report Type: 
  Country: None (occurrence: None)
  Receive Date: 20091208
  Receipt Date: 20091203
  Transmission Date: 20100525
  Serious: Yes (Death, Life-Threatening, Hospitalization)
  Sender: FDA-Public Use
  Company Number: SPV1-2009-02221

PATIENT
  Age: 82 Year
  Sex: Female
  Weight: 60 kg

DRUGS (9)
  1. XAGRID(ANAGRELIDE HYDROCHLORIDE) CAPSULE [Suspect]
     Indication: ESSENTIAL THROMBOCYTHAEMIA
     Dosage: 1.5 MG TOTAL DAILY DOSE (DIVIDED INTO TWO DOSES), ORAL; 0.5 MG, 1X/DAY, ORAL; 1 MG DAILY, ORAL
     Route: 048
     Dates: start: 20091001, end: 20090101
  2. XAGRID(ANAGRELIDE HYDROCHLORIDE) CAPSULE [Suspect]
     Indication: ESSENTIAL THROMBOCYTHAEMIA
     Dosage: 1.5 MG TOTAL DAILY DOSE (DIVIDED INTO TWO DOSES), ORAL; 0.5 MG, 1X/DAY, ORAL; 1 MG DAILY, ORAL
     Route: 048
     Dates: start: 20090101, end: 20091101
  3. XAGRID(ANAGRELIDE HYDROCHLORIDE) CAPSULE [Suspect]
     Indication: ESSENTIAL THROMBOCYTHAEMIA
     Dosage: 1.5 MG TOTAL DAILY DOSE (DIVIDED INTO TWO DOSES), ORAL; 0.5 MG, 1X/DAY, ORAL; 1 MG DAILY, ORAL
     Route: 048
     Dates: start: 20091101, end: 20091108
  4. ATENOLOL [Concomitant]
  5. BENDROFLUAZIDE (BENDROFLUAZIDE) [Concomitant]
  6. ASPIRIN [Concomitant]
  7. DOXAZOSIN MESYLATE [Concomitant]
  8. FERROUS SULPHATE /00023503/ (FERROUS SULFATE) [Concomitant]
  9. IBUPROFEN [Concomitant]

REACTIONS (10)
  - ACUTE RESPIRATORY DISTRESS SYNDROME [None]
  - HYPOTENSION [None]
  - LUNG INFILTRATION [None]
  - PNEUMONITIS [None]
  - PULMONARY FIBROSIS [None]
  - PULMONARY HYPERTENSION [None]
  - RENAL FAILURE [None]
  - RIGHT VENTRICULAR FAILURE [None]
  - RIGHT VENTRICULAR SYSTOLIC PRESSURE INCREASED [None]
  - SEPSIS [None]
